FAERS Safety Report 15989192 (Version 1)
Quarter: 2019Q1

REPORT INFORMATION
  Report Type: Spontaneous
  Country: US (occurrence: US)
  Receive Date: 20190221
  Receipt Date: 20190221
  Transmission Date: 20190418
  Serious: No
  Sender: FDA-Public Use
  Company Number: US-BAUSCH-BL-2019-005069

PATIENT
  Sex: Female

DRUGS (3)
  1. XIFAXAN [Suspect]
     Active Substance: RIFAXIMIN
     Dosage: FOR 3 WEEKS (TREATMENT CYCLE)
     Route: 048
  2. XIFAXAN [Suspect]
     Active Substance: RIFAXIMIN
     Indication: IRRITABLE BOWEL SYNDROME
     Dosage: FOR 2 WEEKS
     Route: 048
     Dates: start: 201507, end: 2015
  3. XIFAXAN [Suspect]
     Active Substance: RIFAXIMIN
     Dosage: ON AND OFF EVERY 3 MONTHS
     Route: 048
     Dates: start: 2015

REACTIONS (3)
  - Incorrect product administration duration [Unknown]
  - Gastric disorder [Not Recovered/Not Resolved]
  - Intentional product use issue [Unknown]
